FAERS Safety Report 20297764 (Version 2)
Quarter: 2022Q1

REPORT INFORMATION
  Report Type: Spontaneous
  Country: KR (occurrence: KR)
  Receive Date: 20220105
  Receipt Date: 20220117
  Transmission Date: 20220423
  Serious: Yes (Death, Other)
  Sender: FDA-Public Use
  Company Number: KR-AMGEN-KORSP2021207695

PATIENT

DRUGS (5)
  1. CARFILZOMIB [Suspect]
     Active Substance: CARFILZOMIB
     Indication: Plasma cell myeloma
     Dosage: UNK
     Route: 065
  2. BORTEZOMIB [Concomitant]
     Active Substance: BORTEZOMIB
     Indication: Plasma cell myeloma
     Dosage: UNK
     Route: 065
  3. THALIDOMIDE [Concomitant]
     Active Substance: THALIDOMIDE
     Indication: Plasma cell myeloma
     Dosage: UNK
     Route: 065
  4. LENALIDOMIDE [Concomitant]
     Active Substance: LENALIDOMIDE
     Indication: Plasma cell myeloma
     Dosage: UNK
     Route: 065
  5. POMALIDOMIDE [Concomitant]
     Active Substance: POMALIDOMIDE
     Indication: Plasma cell myeloma
     Dosage: UNK
     Route: 065

REACTIONS (8)
  - Aspergillus infection [Unknown]
  - Pneumonia [Fatal]
  - Urinary tract infection [Fatal]
  - Plasma cell myeloma [Fatal]
  - Neutropenia [Unknown]
  - Febrile neutropenia [Unknown]
  - Therapy partial responder [Unknown]
  - General physical health deterioration [Unknown]
